FAERS Safety Report 8927737 (Version 2)
Quarter: 2013Q1

REPORT INFORMATION
  Report Type: Spontaneous
  Country: US (occurrence: US)
  Receive Date: 20121127
  Receipt Date: 20130122
  Transmission Date: 20140127
  Serious: Yes (Hospitalization, Other)
  Sender: FDA-Public Use
  Company Number: PHEH2012US001163

PATIENT
  Age: 10 Year
  Sex: Male

DRUGS (10)
  1. AFINITOR [Suspect]
     Indication: TUBEROUS SCLEROSIS
     Dosage: 7.5 MG, DAILY
     Route: 048
     Dates: start: 20100704, end: 20111222
  2. AFINITOR [Suspect]
     Dosage: UNK
     Route: 048
     Dates: start: 20120101, end: 20120525
  3. AFINITOR [Suspect]
     Dosage: 10 MG/DAY
     Route: 048
     Dates: start: 20120618, end: 20121125
  4. VIMPAT [Concomitant]
  5. TAURINE [Concomitant]
  6. SABRIL [Concomitant]
  7. ABILIFY [Concomitant]
  8. ONFI [Concomitant]
     Dosage: 40 MG
  9. METFORMIN [Concomitant]
  10. GUIAFICINE [Concomitant]

REACTIONS (12)
  - Grand mal convulsion [Recovered/Resolved]
  - Sinusitis [Recovered/Resolved]
  - Convulsion [Not Recovered/Not Resolved]
  - Somnolence [Unknown]
  - Upper respiratory tract infection [Not Recovered/Not Resolved]
  - Cough [Not Recovered/Not Resolved]
  - Nasopharyngitis [Not Recovered/Not Resolved]
  - Rhinorrhoea [Not Recovered/Not Resolved]
  - Gastroenteritis viral [Recovered/Resolved]
  - Malaise [Recovered/Resolved]
  - Aspiration [Unknown]
  - Bronchitis [Recovered/Resolved]
